FAERS Safety Report 8317216-4 (Version None)
Quarter: 2012Q2

REPORT INFORMATION
  Report Type: 
  Country: None (occurrence: None)
  Receive Date: 20120427
  Receipt Date: 20120421
  Transmission Date: 20120825
  Serious: Yes (Hospitalization)
  Sender: FDA-Public Use
  Company Number: US-BAYER-2011-098631

PATIENT
  Age: 41 Year
  Sex: Female
  Weight: 68 kg

DRUGS (5)
  1. YASMIN [Suspect]
     Indication: CONTRACEPTION
     Dosage: UNK
     Dates: start: 20070829, end: 20080909
  2. YASMIN [Suspect]
     Indication: METRORRHAGIA
  3. YASMIN [Suspect]
     Indication: PREMENSTRUAL SYNDROME
  4. VERAPAMIL [Concomitant]
     Dosage: 120 MG, ONCE A DAY AT NIGHT, UNK
  5. ZOLOFT [Concomitant]
     Indication: MOOD SWINGS

REACTIONS (9)
  - FEAR [None]
  - DEHYDRATION [None]
  - WEIGHT INCREASED [None]
  - ARTHRALGIA [None]
  - HUNGER [None]
  - MENTAL DISORDER [None]
  - THIRST [None]
  - PAIN [None]
  - MYOCARDIAL INFARCTION [None]
